FAERS Safety Report 6385661-2 (Version None)
Quarter: 2009Q4

REPORT INFORMATION
  Report Type: 
  Country: None (occurrence: None)
  Receive Date: 20091002
  Receipt Date: 20081223
  Transmission Date: 20100525
  Serious: No
  Sender: FDA-Public Use
  Company Number: US-ASTRAZENECA-2008UW23156

PATIENT
  Age: 74 Year
  Sex: Female
  Weight: 63.5 kg

DRUGS (2)
  1. ARIMIDEX [Suspect]
     Indication: BREAST CANCER
     Route: 048
     Dates: start: 20071001
  2. CARDIZEM [Concomitant]

REACTIONS (5)
  - ARTHRALGIA [None]
  - BLEPHARITIS [None]
  - DRY EYE [None]
  - EYE DISORDER [None]
  - HOT FLUSH [None]
